FAERS Safety Report 9321111 (Version 1)
Quarter: 2013Q2

REPORT INFORMATION
  Report Type: Spontaneous
  Country: DE (occurrence: DE)
  Receive Date: 20130531
  Receipt Date: 20130531
  Transmission Date: 20140414
  Serious: Yes (Congenital Anomaly, Other)
  Sender: FDA-Public Use
  Company Number: DE-ROCHE-1228140

PATIENT
  Age: 0 Year
  Sex: Male
  Weight: 4.88 kg

DRUGS (7)
  1. RIVOTRIL [Suspect]
     Indication: BORDERLINE PERSONALITY DISORDER
     Route: 064
     Dates: start: 20110806, end: 20120315
  2. KEPPRA [Suspect]
     Indication: EPILEPSY
     Route: 064
     Dates: start: 20110806, end: 20120511
  3. LAMOTRIGIN [Suspect]
     Indication: EPILEPSY
     Route: 064
     Dates: start: 20110806, end: 20120511
  4. SEROQUEL [Suspect]
     Indication: BORDERLINE PERSONALITY DISORDER
     Route: 064
     Dates: start: 20110806, end: 20120511
  5. EUTHYROX [Concomitant]
     Indication: HYPOTHYROIDISM
     Dosage: DAILY
     Route: 064
     Dates: start: 20110806, end: 20120511
  6. TRIMIPRAMINE MALEATE [Concomitant]
     Indication: BORDERLINE PERSONALITY DISORDER
     Dosage: DAILY
     Route: 064
     Dates: start: 20110806, end: 20111215
  7. HEROIN [Concomitant]
     Route: 064

REACTIONS (5)
  - Neonatal respiratory distress syndrome [Recovered/Resolved]
  - Withdrawal syndrome [Recovered/Resolved]
  - Convulsion [Recovered/Resolved]
  - Dysmorphism [Unknown]
  - Maternal exposure timing unspecified [Unknown]
